FAERS Safety Report 9247591 (Version 4)
Quarter: 2013Q4

REPORT INFORMATION
  Report Type: Spontaneous
  Country: US (occurrence: US)
  Receive Date: 20130423
  Receipt Date: 20131017
  Transmission Date: 20140711
  Serious: Yes (Hospitalization, Other)
  Sender: FDA-Public Use
  Company Number: US-PFIZER INC-2013125205

PATIENT
  Age: 55 Year
  Sex: Female

DRUGS (9)
  1. FLAGYL [Suspect]
     Indication: ABDOMINAL PAIN LOWER
     Dosage: 500 MG, 4X/DAY
     Route: 042
     Dates: start: 20100510, end: 20100519
  2. FLAGYL [Suspect]
     Indication: DIARRHOEA
  3. LEVOFLOXACIN [Concomitant]
     Dosage: 500 MG, 1X/DAY
     Route: 042
  4. ONDANSETRON [Concomitant]
     Indication: NAUSEA
     Dosage: 4 MG, 4X/DAY
     Route: 042
  5. ACETAMINOPHEN [Concomitant]
     Dosage: 650 MG, 4X/DAY
     Route: 048
  6. COLAZAL [Concomitant]
     Indication: COLITIS ULCERATIVE
     Dosage: 750 MG, 3X/DAY
     Route: 048
  7. BENICAR HCT [Concomitant]
     Indication: BLOOD PRESSURE
     Dosage: 1 DF, 1X/DAY
     Route: 048
  8. PRILOSEC [Concomitant]
     Dosage: 20 MG, 1X/DAY
     Route: 048
  9. ESTRATEST [Concomitant]
     Indication: HORMONE THERAPY
     Dosage: 1 DF, 1X/DAY
     Route: 048

REACTIONS (2)
  - Suspected transmission of an infectious agent via product [Recovered/Resolved]
  - Fungal infection [Recovered/Resolved]
